FAERS Safety Report 6771977-4 (Version None)
Quarter: 2010Q2

REPORT INFORMATION
  Report Type: 
  Country: None (occurrence: None)
  Receive Date: 20100616
  Receipt Date: 20100422
  Transmission Date: 20101027
  Serious: No
  Sender: FDA-Public Use
  Company Number: US-ASTRAZENECA-2010SE18366

PATIENT
  Age: 23703 Day
  Sex: Female

DRUGS (1)
  1. RHINOCORT [Suspect]
     Route: 045

REACTIONS (1)
  - BURNS SECOND DEGREE [None]
